FAERS Safety Report 16287167 (Version 1)
Quarter: 2019Q2

REPORT INFORMATION
  Report Type: Spontaneous
  Country: CN (occurrence: CN)
  Receive Date: 20190508
  Receipt Date: 20190508
  Transmission Date: 20190711
  Serious: Yes (Life-Threatening)
  Sender: FDA-Public Use
  Company Number: CN-PFIZER INC-2019194676

PATIENT
  Age: 76 Year
  Sex: Male

DRUGS (19)
  1. PIPERACILLIN AND TAZOBACTAM [Suspect]
     Active Substance: PIPERACILLIN SODIUM\TAZOBACTAM SODIUM
     Indication: PNEUMONIA
     Dosage: 3.375 G, 3X/DAY
     Route: 041
     Dates: start: 20190409, end: 20190422
  2. FLUIMUCIL [Concomitant]
     Active Substance: ACETYLCYSTEINE
     Indication: PRODUCTIVE COUGH
     Dosage: 3 ML, 3X/DAY
     Dates: start: 20190312, end: 20190423
  3. ZHENG CHANG SHENG [Concomitant]
     Indication: DYSBIOSIS
     Dosage: 0.5 G, 3X/DAY
     Route: 045
     Dates: start: 20190318, end: 20190423
  4. FOSFOMYCIN SODIUM [Concomitant]
     Active Substance: FOSFOMYCIN SODIUM
     Indication: PNEUMONIA
     Dosage: 8 G, 2X/DAY
     Route: 041
     Dates: start: 20190402, end: 20190422
  5. SPIRONOLACTONE. [Concomitant]
     Active Substance: SPIRONOLACTONE
     Indication: DIURETIC THERAPY
     Dosage: 20 MG, 1X/DAY
     Route: 045
     Dates: start: 20190311, end: 20190423
  6. PULMICORT TURBUHALER [Concomitant]
     Active Substance: BUDESONIDE
     Indication: PRODUCTIVE COUGH
     Dosage: 1 ML, 3X/DAY
     Dates: start: 20190312, end: 20190423
  7. FUROSEMIDE. [Concomitant]
     Active Substance: FUROSEMIDE
     Indication: DIURETIC THERAPY
     Dosage: 20 MG, 1X/DAY
     Route: 045
     Dates: start: 20190311, end: 20190423
  8. MENG LUO YING [Concomitant]
     Dosage: 1 ML, 1X/DAY
     Route: 030
     Dates: start: 20190420, end: 20190420
  9. PERINDOPRIL TERT-BUTYLAMINE [Concomitant]
     Active Substance: PERINDOPRIL ERBUMINE
     Indication: VASODILATION PROCEDURE
     Dosage: 2 MG, 1X/DAY
     Route: 045
     Dates: start: 20190311, end: 20190423
  10. MENG LUO YING [Concomitant]
     Dosage: 1 ML, 1X/DAY
     Route: 030
     Dates: start: 20190406, end: 20190406
  11. PROTEIN HYDROLYSATE [Concomitant]
     Active Substance: PROTEIN HYDROLYSATE
     Indication: SUPPLEMENTATION THERAPY
     Dosage: 30 ML, 3X/DAY
     Route: 045
     Dates: start: 20190311, end: 20190423
  12. FOSFOMYCIN SODIUM [Concomitant]
     Active Substance: FOSFOMYCIN SODIUM
     Indication: INFECTION
  13. BETALOC [METOPROLOL TARTRATE] [Concomitant]
     Active Substance: METOPROLOL TARTRATE
     Indication: HEART RATE ABNORMAL
     Dosage: 25 MG, 2X/DAY
     Route: 045
     Dates: start: 20190414, end: 20190423
  14. MONTMORILLONITE [Concomitant]
     Active Substance: MONTMORILLONITE
     Indication: DIARRHOEA
     Dosage: 6 G, 3X/DAY
     Route: 045
     Dates: start: 20190409, end: 20190419
  15. CELEBREX [Suspect]
     Active Substance: CELECOXIB
     Indication: GOUTY ARTHRITIS
     Dosage: 200 MG, 2X/DAY
     Route: 048
     Dates: start: 20190409, end: 20190422
  16. MENG LUO YING [Concomitant]
     Indication: PYREXIA
     Dosage: 1 ML, 1X/DAY
     Route: 030
     Dates: start: 20190322, end: 20190322
  17. MENG LUO YING [Concomitant]
     Dosage: 1 ML, 1X/DAY
     Route: 030
     Dates: start: 20190421, end: 20190421
  18. OMEPRAZOLE. [Concomitant]
     Active Substance: OMEPRAZOLE
     Indication: PROPHYLAXIS AGAINST GASTROINTESTINAL ULCER
     Dosage: 40 MG, 2X/DAY
     Dates: start: 20190319, end: 20190422
  19. MEDROL [Concomitant]
     Active Substance: METHYLPREDNISOLONE
     Indication: ANTIINFLAMMATORY THERAPY
     Dosage: 16 MG, 1X/DAY
     Route: 045
     Dates: start: 20190409, end: 20190422

REACTIONS (2)
  - Drug eruption [Unknown]
  - Staphylococcal scalded skin syndrome [Unknown]

NARRATIVE: CASE EVENT DATE: 20190422
